FAERS Safety Report 8418048-9 (Version None)
Quarter: 2012Q2

REPORT INFORMATION
  Report Type: 
  Country: None (occurrence: None)
  Receive Date: 20120607
  Receipt Date: 20120530
  Transmission Date: 20120825
  Serious: Yes (Other)
  Sender: FDA-Public Use
  Company Number: GR-JNJFOC-20120601932

PATIENT
  Sex: Male

DRUGS (1)
  1. STELARA [Suspect]
     Indication: PSORIASIS
     Dosage: AFTER THE 5TH INJECTION PATIENT DEVELOPED INCREASED TRANSAMINASE LEVELS
     Route: 058

REACTIONS (1)
  - TRANSAMINASES INCREASED [None]
